FAERS Safety Report 7506745-9 (Version None)
Quarter: 2011Q2

REPORT INFORMATION
  Report Type: 
  Country: None (occurrence: None)
  Receive Date: 20110526
  Receipt Date: 20110518
  Transmission Date: 20111010
  Serious: Yes (Life-Threatening, Hospitalization)
  Sender: FDA-Public Use
  Company Number: FR-JNJFOC-20110303326

PATIENT
  Sex: Male
  Weight: 49 kg

DRUGS (5)
  1. ISENTRESS [Suspect]
     Indication: HIV INFECTION
     Route: 065
     Dates: start: 20101213, end: 20110222
  2. NEURONTIN [Concomitant]
  3. FENOFIBRATE [Concomitant]
     Indication: PRODUCT USED FOR UNKNOWN INDICATION
  4. PREZISTA [Suspect]
     Indication: HIV INFECTION
     Route: 048
     Dates: start: 20101213, end: 20110222
  5. NORVIR [Concomitant]
     Indication: HIV INFECTION
     Dates: start: 20101213

REACTIONS (3)
  - CYTOLYTIC HEPATITIS [None]
  - SEPSIS [None]
  - DRUG RASH WITH EOSINOPHILIA AND SYSTEMIC SYMPTOMS [None]
